FAERS Safety Report 9379731 (Version 1)
Quarter: 2013Q3

REPORT INFORMATION
  Report Type: Spontaneous
  Country: NL (occurrence: NL)
  Receive Date: 20130702
  Receipt Date: 20130702
  Transmission Date: 20140515
  Serious: Yes (Life-Threatening)
  Sender: FDA-Public Use
  Company Number: NL-ABBOTT-13X-114-1112942-00

PATIENT
  Age: 51 Year
  Sex: Male

DRUGS (8)
  1. VALPROIC ACID [Suspect]
     Indication: BIPOLAR DISORDER
     Route: 048
     Dates: start: 19970123
  2. CARBAMAZEPINE [Suspect]
     Indication: BIPOLAR DISORDER
     Dosage: 600 MILLIGRAM(S) ;DAILY
     Route: 048
     Dates: start: 1987
  3. PIPAMPERONE [Suspect]
     Indication: ABNORMAL BEHAVIOUR
     Dosage: 120 MILLIGRAM(S) ;DAILY
     Route: 048
     Dates: start: 1983
  4. BACLOFEN [Suspect]
     Indication: HYPERTONIA
     Dosage: 30 MILLIGRAM(S) ;DAILY
     Route: 048
     Dates: start: 2002
  5. BROMAZEPAM [Concomitant]
     Indication: PRODUCT USED FOR UNKNOWN INDICATION
     Dates: start: 19980102
  6. MOVICOLON [Concomitant]
     Indication: PRODUCT USED FOR UNKNOWN INDICATION
  7. OMEPRAZOLE [Concomitant]
     Indication: PRODUCT USED FOR UNKNOWN INDICATION
  8. CALCICHEW [Concomitant]
     Indication: PRODUCT USED FOR UNKNOWN INDICATION

REACTIONS (1)
  - Dystonia [Recovering/Resolving]
